FAERS Safety Report 15152742 (Version 1)
Quarter: 2018Q3

REPORT INFORMATION
  Report Type: Other
  Country: RU (occurrence: RU)
  Receive Date: 20180717
  Receipt Date: 20180717
  Transmission Date: 20181010
  Serious: No
  Sender: FDA-Public Use
  Company Number: RU-LUPIN PHARMACEUTICALS INC.-2018-03775

PATIENT
  Age: 20 Year
  Sex: Female
  Weight: 40 kg

DRUGS (19)
  1. KANAMYCIN [Concomitant]
     Active Substance: KANAMYCIN\KANAMYCIN A SULFATE
     Indication: PULMONARY TUBERCULOSIS
     Dosage: UNK
     Route: 030
     Dates: start: 20120601, end: 20120615
  2. FOLIC ACID. [Concomitant]
     Active Substance: FOLIC ACID
     Indication: ANAEMIA PROPHYLAXIS
     Dosage: UNK
     Route: 048
     Dates: start: 20120316, end: 20120511
  3. HEPTRAL                            /00882301/ [Concomitant]
     Indication: PROPHYLAXIS
     Dosage: UNK
     Route: 042
     Dates: start: 20120518, end: 20120522
  4. APROTEX [Concomitant]
     Indication: HAEMOPTYSIS
     Dosage: UNK
     Route: 042
     Dates: start: 20120615
  5. VICASOL [Concomitant]
     Indication: HAEMOPTYSIS
     Dosage: UNK
     Route: 030
     Dates: start: 20120612
  6. PHOSPHOGLIV                        /06724301/ [Concomitant]
     Indication: PROPHYLAXIS
     Dosage: UNK
     Route: 048
     Dates: start: 20120316, end: 20120510
  7. LEVOFLOXACIN. [Concomitant]
     Active Substance: LEVOFLOXACIN
     Indication: PULMONARY TUBERCULOSIS
     Dosage: UNK
     Route: 048
     Dates: start: 20120601, end: 20120615
  8. FESTAL [Concomitant]
     Indication: PROPHYLAXIS
     Dosage: UNK
     Route: 048
     Dates: start: 20120417, end: 20120511
  9. PYRAZINAMIDE. [Suspect]
     Active Substance: PYRAZINAMIDE
     Indication: PRODUCT USED FOR UNKNOWN INDICATION
     Dosage: UNK
     Route: 065
  10. COMBUTOL [Concomitant]
     Active Substance: ETHAMBUTOL HYDROCHLORIDE
     Indication: PULMONARY TUBERCULOSIS
     Dosage: UNK
     Route: 048
     Dates: start: 20120316, end: 20120511
  11. PYRIDOXINE                         /00058902/ [Concomitant]
     Active Substance: PYRIDOXINE
     Indication: PRODUCT USED FOR UNKNOWN INDICATION
     Dosage: UNK
     Route: 030
     Dates: start: 20120511, end: 20120515
  12. FENAZID [Concomitant]
     Indication: PULMONARY TUBERCULOSIS
     Dosage: UNK
     Route: 048
     Dates: start: 20120316, end: 20120511
  13. ETAMSYLATE [Concomitant]
     Active Substance: ETHAMSYLATE
     Indication: HAEMOPTYSIS
     Dosage: UNK
     Route: 042
     Dates: start: 20120612
  14. VITAMIN C [Concomitant]
     Active Substance: ASCORBIC ACID
     Indication: HAEMOPTYSIS
     Dosage: UNK
     Route: 042
     Dates: start: 20120612
  15. OMEPRAZOLE. [Concomitant]
     Active Substance: OMEPRAZOLE
     Indication: PROPHYLAXIS
     Dosage: UNK
     Route: 048
     Dates: start: 20120316, end: 20120511
  16. CEFTRIAXONE. [Suspect]
     Active Substance: CEFTRIAXONE
     Indication: PRODUCT USED FOR UNKNOWN INDICATION
     Dosage: UNK
     Route: 065
  17. RIFABUTIN. [Suspect]
     Active Substance: RIFABUTIN
     Indication: PULMONARY TUBERCULOSIS
     Dosage: 0.3 G, QD
     Route: 048
     Dates: start: 20120601, end: 20120615
  18. ESSENTIALE                         /00022201/ [Concomitant]
     Indication: PROPHYLAXIS
     Dosage: UNK
     Dates: start: 20120511, end: 20120515
  19. PANCREATIN [Concomitant]
     Active Substance: PANCRELIPASE
     Indication: PROPHYLAXIS
     Dosage: UNK
     Route: 048
     Dates: start: 20120316, end: 20120416

REACTIONS (1)
  - Alanine aminotransferase increased [Not Recovered/Not Resolved]

NARRATIVE: CASE EVENT DATE: 20120615
